FAERS Safety Report 9158238 (Version 1)
Quarter: 2013Q1

REPORT INFORMATION
  Report Type: Spontaneous
  Country: PH (occurrence: PH)
  Receive Date: 20130312
  Receipt Date: 20130312
  Transmission Date: 20140127
  Serious: Yes (Death, Hospitalization, Other)
  Sender: FDA-Public Use
  Company Number: PH-BAXTER-2013BAX008363

PATIENT
  Age: 86 Year
  Sex: Female

DRUGS (1)
  1. DIANEAL PD2 WITH 1.5% DEXTROSE [Suspect]
     Indication: PERITONEAL DIALYSIS
     Route: 033
     Dates: start: 20130216

REACTIONS (9)
  - Arrhythmia [Fatal]
  - Cardio-respiratory arrest [Fatal]
  - Acute coronary syndrome [Unknown]
  - Cardiac failure [Unknown]
  - Hypoxic-ischaemic encephalopathy [Unknown]
  - Pneumonia [Unknown]
  - Diabetic nephropathy [Unknown]
  - Type 2 diabetes mellitus [Unknown]
  - Decreased appetite [Unknown]
